FAERS Safety Report 23048091 (Version 4)
Quarter: 2024Q3

REPORT INFORMATION
  Report Type: Spontaneous
  Country: JP (occurrence: JP)
  Receive Date: 20231010
  Receipt Date: 20240702
  Transmission Date: 20241016
  Serious: Yes (Life-Threatening, Hospitalization, Other)
  Sender: MERCK
  Company Number: JP-MSD-M2023-41706

PATIENT
  Sex: Female
  Weight: 39 kg

DRUGS (20)
  1. KEYTRUDA [Suspect]
     Active Substance: PEMBROLIZUMAB
     Indication: Oropharyngeal cancer recurrent
     Dosage: 200 MILLIGRAM, Q3W
     Route: 041
     Dates: start: 20230510, end: 20230726
  2. KEYTRUDA [Suspect]
     Active Substance: PEMBROLIZUMAB
     Indication: PD-L1 positive cancer
  3. CARBOPLATIN [Suspect]
     Active Substance: CARBOPLATIN
     Indication: Oropharyngeal cancer recurrent
     Dosage: AUC5, Q3W
     Route: 041
     Dates: start: 20230510, end: 20230726
  4. CARBOPLATIN [Suspect]
     Active Substance: CARBOPLATIN
     Indication: PD-L1 positive cancer
  5. FLUOROURACIL [Suspect]
     Active Substance: FLUOROURACIL
     Indication: Oropharyngeal cancer recurrent
     Dosage: 600 MILLIGRAM/SQ. METER, CONTINUOUS ADMINISTRATION FOR 4 DAYS EVERY 3 WEEKS
     Route: 041
     Dates: start: 20230510, end: 20230730
  6. FLUOROURACIL [Suspect]
     Active Substance: FLUOROURACIL
     Indication: PD-L1 positive cancer
  7. MORPHINE SULFATE [Concomitant]
     Active Substance: MORPHINE SULFATE
     Indication: Cancer pain
     Dosage: 10 MILLIGRAM, BID
     Route: 048
     Dates: start: 20230508
  8. MORPHINE HYDROCHLORIDE [Concomitant]
     Active Substance: MORPHINE HYDROCHLORIDE
     Indication: Cancer pain
     Dosage: 5 GRAM, QD
     Route: 048
     Dates: start: 20230502
  9. LUNESTA [Concomitant]
     Active Substance: ESZOPICLONE
     Indication: Insomnia
     Dosage: 2 MILLIGRAM, QD
     Route: 048
     Dates: start: 20220928
  10. CALONAL [Concomitant]
     Active Substance: ACETAMINOPHEN
     Indication: Cancer pain
     Dosage: 400 MILLIGRAM, QID
     Route: 048
     Dates: start: 20220930
  11. MAGNESIUM OXIDE [Concomitant]
     Active Substance: MAGNESIUM OXIDE
     Indication: Constipation
     Dosage: 500 MILLIGRAM, BID
     Route: 048
     Dates: start: 20220930
  12. AMLODIPINE BESYLATE [Concomitant]
     Active Substance: AMLODIPINE BESYLATE
     Indication: Hypertension
     Dosage: 2.5 MILLIGRAM, QD
     Route: 048
  13. MOSAPRIDE CITRATE [Concomitant]
     Active Substance: MOSAPRIDE CITRATE
     Indication: Abdominal distension
     Dosage: 5 MILLIGRAM, TID
     Route: 048
     Dates: start: 20220930
  14. JANUVIA [Concomitant]
     Active Substance: SITAGLIPTIN PHOSPHATE
     Indication: Diabetes mellitus
     Dosage: 25 MILLIGRAM, QD
     Route: 048
  15. RAMELTEON [Concomitant]
     Active Substance: RAMELTEON
     Indication: Insomnia
     Dosage: 8 MILLIGRAM, QD
     Route: 048
     Dates: start: 20220928
  16. PREGABALIN [Concomitant]
     Active Substance: PREGABALIN
     Indication: Cancer pain
     Dosage: 75 MILLIGRAM, BID
     Route: 048
     Dates: start: 20220502
  17. EMEND [Concomitant]
     Active Substance: APREPITANT
     Indication: Chemotherapy side effect prophylaxis
     Dosage: 125 MILLIGRAM, QD
     Route: 048
     Dates: start: 20230510, end: 20230510
  18. EMEND [Concomitant]
     Active Substance: APREPITANT
     Dosage: 80 MILLIGRAM, QD
     Route: 048
     Dates: start: 20230511, end: 20230512
  19. PALONOSETRON HYDROCHLORIDE [Concomitant]
     Active Substance: PALONOSETRON HYDROCHLORIDE
     Indication: Chemotherapy side effect prophylaxis
     Dosage: 0.75 MILLIGRAM, QD
     Route: 042
     Dates: start: 20230510, end: 20230510
  20. DEXAMETHASONE SODIUM PHOSPHATE [Concomitant]
     Active Substance: DEXAMETHASONE PHOSPHATE\DEXAMETHASONE SODIUM PHOSPHATE
     Indication: Chemotherapy side effect prophylaxis
     Dosage: 4.95 MILLIGRAM, QD
     Route: 042
     Dates: start: 20230510, end: 20230512

REACTIONS (7)
  - Myelosuppression [Unknown]
  - Pneumonia pseudomonal [Recovered/Resolved with Sequelae]
  - Infusion site extravasation [Recovered/Resolved]
  - Cheilitis [Recovered/Resolved]
  - Stomatitis [Recovered/Resolved]
  - Nausea [Recovered/Resolved]
  - Decreased appetite [Recovered/Resolved]

NARRATIVE: CASE EVENT DATE: 20230101
